FAERS Safety Report 8971126 (Version 1)
Quarter: 2012Q4

REPORT INFORMATION
  Report Type: 
  Country: IT (occurrence: IT)
  Receive Date: 20121218
  Receipt Date: 20121218
  Transmission Date: 20130627
  Serious: Yes (Hospitalization)
  Sender: FDA-Public Use
  Company Number: IT-PFIZER INC-2012319187

PATIENT
  Age: 2 Year
  Sex: Female

DRUGS (4)
  1. AURANTIN [Suspect]
     Indication: CONVULSIONS
     Dosage: 40 mg, 3x/day
     Route: 042
     Dates: start: 20121127, end: 20121130
  2. MIDAZOLAM [Concomitant]
  3. RANIDIL [Concomitant]
     Route: 042
  4. ROCEFIN [Concomitant]
     Dosage: 1 g, UNK
     Route: 042

REACTIONS (3)
  - Altered state of consciousness [Recovered/Resolved]
  - Nystagmus [Recovered/Resolved]
  - Toxicity to various agents [Recovered/Resolved]
